FAERS Safety Report 10707028 (Version 1)
Quarter: 2015Q1

REPORT INFORMATION
  Report Type: Spontaneous
  Country: US (occurrence: None)
  Receive Date: 20150112
  Receipt Date: 20150112
  Transmission Date: 20150721
  Serious: Yes (Other)
  Sender: FDA-Public Use
  Company Number: None

PATIENT
  Age: 23 Year
  Sex: Male
  Weight: 52.62 kg

DRUGS (2)
  1. RISPERIDONE. [Suspect]
     Active Substance: RISPERIDONE
     Indication: PROPHYLAXIS
     Dosage: 1/DAY  ONCE DAILY TAKEN BY MOUTH
     Route: 048
     Dates: start: 20150108, end: 20150109
  2. HALDOL [Suspect]
     Active Substance: HALOPERIDOL
     Indication: DRUG THERAPY
     Route: 042
     Dates: start: 20150106

REACTIONS (4)
  - Activities of daily living impaired [None]
  - Contraindication to medical treatment [None]
  - Somnolence [None]
  - Angina pectoris [None]

NARRATIVE: CASE EVENT DATE: 20150106
